FAERS Safety Report 11105843 (Version 1)
Quarter: 2015Q2

REPORT INFORMATION
  Report Type: Spontaneous
  Country: US (occurrence: US)
  Receive Date: 20150512
  Receipt Date: 20150512
  Transmission Date: 20150821
  Serious: Yes (Other)
  Sender: FDA-Public Use
  Company Number: US-AUROBINDO-AUR-APL-2015-04151

PATIENT
  Age: 53 Year
  Sex: Male

DRUGS (1)
  1. LEVOFLOXACIN. [Suspect]
     Active Substance: LEVOFLOXACIN
     Indication: BRONCHITIS
     Dosage: UNK
     Route: 065

REACTIONS (13)
  - Ventricular dysfunction [Unknown]
  - Ventricular hypertrophy [Recovered/Resolved]
  - Troponin I increased [Unknown]
  - Heart sounds abnormal [Unknown]
  - Myocardial oedema [Unknown]
  - Jugular vein distension [Unknown]
  - Ejection fraction decreased [Recovering/Resolving]
  - Pericardial effusion [Unknown]
  - Ventricular hypokinesia [Unknown]
  - Sinus tachycardia [Unknown]
  - Eosinophilic myocarditis [Unknown]
  - Eosinophilia [Unknown]
  - Tachycardia [Unknown]
